FAERS Safety Report 12040855 (Version 1)
Quarter: 2016Q1

REPORT INFORMATION
  Report Type: Report from Study
  Country: US (occurrence: US)
  Receive Date: 20160208
  Receipt Date: 20160208
  Transmission Date: 20160526
  Serious: No
  Sender: FDA-Public Use
  Company Number: US-ABBVIE-15K-163-1530375-00

PATIENT
  Age: 62 Year
  Sex: Female

DRUGS (1)
  1. HUMIRA [Suspect]
     Active Substance: ADALIMUMAB
     Indication: PSORIATIC ARTHROPATHY
     Route: 058
     Dates: start: 20151114

REACTIONS (13)
  - Hyperhidrosis [Unknown]
  - Musculoskeletal pain [Unknown]
  - Injection site pain [Unknown]
  - Body temperature increased [Unknown]
  - Sneezing [Unknown]
  - Flushing [Unknown]
  - Blood pressure increased [Unknown]
  - Feeling hot [Unknown]
  - Peripheral swelling [Unknown]
  - Depression [Unknown]
  - Rhinalgia [Unknown]
  - Furuncle [Unknown]
  - Skin wound [Unknown]

NARRATIVE: CASE EVENT DATE: 2015
